FAERS Safety Report 17550928 (Version 1)
Quarter: 2020Q1

REPORT INFORMATION
  Report Type: Spontaneous
  Country: US (occurrence: US)
  Receive Date: 20200317
  Receipt Date: 20200317
  Transmission Date: 20200409
  Serious: No
  Sender: FDA-Public Use
  Company Number: US-EYEVANCE PHARMACEUTICALS-2019EYE00040

PATIENT
  Sex: Female

DRUGS (1)
  1. FLUOROMETHOLONE. [Suspect]
     Active Substance: FLUOROMETHOLONE

REACTIONS (1)
  - Drug ineffective [Unknown]
